FAERS Safety Report 18669009 (Version 1)
Quarter: 2020Q4

REPORT INFORMATION
  Report Type: Spontaneous
  Country: US (occurrence: US)
  Receive Date: 20201227
  Receipt Date: 20201227
  Transmission Date: 20210114
  Serious: No
  Sender: FDA-Public Use
  Company Number: None

PATIENT
  Age: 29 Year
  Sex: Female
  Weight: 90 kg

DRUGS (1)
  1. DOXYCYCLINE HYCLATE HYCLATE [Suspect]
     Active Substance: DOXYCYCLINE HYCLATE
     Indication: ACNE
     Route: 048
     Dates: start: 20201128, end: 20201226

REACTIONS (3)
  - Nausea [None]
  - Dizziness [None]
  - Loss of personal independence in daily activities [None]

NARRATIVE: CASE EVENT DATE: 20201129
